FAERS Safety Report 8763826 (Version 1)
Quarter: 2012Q4

REPORT INFORMATION
  Report Type: Report from Study
  Country: US (occurrence: US)
  Receive Date: 20120831
  Receipt Date: 20120831
  Transmission Date: 20130627
  Serious: Yes (Death)
  Sender: FDA-Public Use
  Company Number: US-SANOFI-AVENTIS-2012SA062601

PATIENT

DRUGS (4)
  1. DOCETAXEL [Suspect]
     Indication: NON-SMALL CELL LUNG CANCER STAGE III
     Route: 065
  2. CISPLATIN [Suspect]
     Indication: NON-SMALL CELL LUNG CANCER STAGE III
     Dosage: on days 1, 8, 29 and 36
     Route: 042
  3. ETOPOSIDE [Suspect]
     Indication: NON-SMALL CELL LUNG CANCER STAGE III
     Dosage: On days 1-5 and 29-33
     Route: 042
  4. THERAPEUTIC RADIOPHARMACEUTICALS [Suspect]
     Indication: NON-SMALL CELL LUNG CANCER STAGE III
     Dosage: 1.8-Gy daily for 5 days a week for a total of 25 fractions (45 Gy)
     Route: 065

REACTIONS (1)
  - Death [Fatal]
